FAERS Safety Report 11114586 (Version 2)
Quarter: 2015Q2

REPORT INFORMATION
  Report Type: Report from Study
  Country: CA (occurrence: CA)
  Receive Date: 20150515
  Receipt Date: 20150622
  Transmission Date: 20150821
  Serious: Yes (Death, Other)
  Sender: FDA-Public Use
  Company Number: CA-ROCHE-1511829

PATIENT
  Age: 48 Year
  Sex: Male

DRUGS (5)
  1. FOLINIC ACID [Concomitant]
     Active Substance: LEUCOVORIN
     Route: 065
     Dates: start: 20140902
  2. AVASTIN [Suspect]
     Active Substance: BEVACIZUMAB
     Indication: COLORECTAL CANCER
     Route: 042
     Dates: start: 20140902, end: 20150408
  3. 5-FLUOROURACIL [Concomitant]
     Active Substance: FLUOROURACIL
     Route: 065
     Dates: start: 20140902
  4. OXALIPLATIN. [Concomitant]
     Active Substance: OXALIPLATIN
     Route: 065
     Dates: start: 20140902
  5. IRINOTECAN [Concomitant]
     Active Substance: IRINOTECAN

REACTIONS (4)
  - Neutrophil count decreased [Not Recovered/Not Resolved]
  - Jaundice [Unknown]
  - Ascites [Unknown]
  - Infection [Fatal]

NARRATIVE: CASE EVENT DATE: 201412
